FAERS Safety Report 7384674-1 (Version None)
Quarter: 2011Q1

REPORT INFORMATION
  Report Type: 
  Country: None (occurrence: None)
  Receive Date: 20110330
  Receipt Date: 20110317
  Transmission Date: 20110831
  Serious: Yes (Hospitalization)
  Sender: FDA-Public Use
  Company Number: PHHO2010FR19373

PATIENT
  Sex: Male
  Weight: 77 kg

DRUGS (4)
  1. SOLUPRED [Concomitant]
  2. CELLCEPT [Suspect]
     Indication: RENAL TRANSPLANT
     Dosage: UNK
     Dates: start: 20100617
  3. SANDIMMUNE [Suspect]
     Indication: RENAL TRANSPLANT
     Dosage: 5 MG PER DAY
     Route: 048
     Dates: start: 20100726, end: 20101207
  4. NEORAL [Suspect]
     Indication: RENAL TRANSPLANT
     Dosage: UNK
     Route: 048
     Dates: start: 20101202

REACTIONS (5)
  - DIARRHOEA [None]
  - COUGH [None]
  - RHINORRHOEA [None]
  - PNEUMONITIS [None]
  - PYREXIA [None]
